FAERS Safety Report 17718241 (Version 5)
Quarter: 2021Q1

REPORT INFORMATION
  Report Type: Spontaneous
  Country: US (occurrence: US)
  Receive Date: 20200428
  Receipt Date: 20210331
  Transmission Date: 20210419
  Serious: Yes (Other)
  Sender: FDA-Public Use
  Company Number: US-GLAXOSMITHKLINE-US2020AMR071497

PATIENT
  Sex: Female

DRUGS (3)
  1. ZEJULA [Suspect]
     Active Substance: NIRAPARIB
     Indication: OVARIAN CANCER
     Dosage: 200 MG, DAILY
     Dates: start: 20200306
  2. ZEJULA [Suspect]
     Active Substance: NIRAPARIB
     Dosage: 200 MG, QD
     Dates: start: 20210305
  3. ZEJULA [Suspect]
     Active Substance: NIRAPARIB
     Dosage: 200 MG, QD
     Dates: start: 20200408

REACTIONS (11)
  - Fatigue [Unknown]
  - Renal impairment [Unknown]
  - Skin lesion [Unknown]
  - Blood creatinine increased [Unknown]
  - Heart rate increased [Unknown]
  - Constipation [Unknown]
  - Hepatic enzyme increased [Unknown]
  - Social problem [Unknown]
  - Peripheral swelling [Unknown]
  - Blood pressure increased [Recovering/Resolving]
  - Product dose omission issue [Unknown]
